FAERS Safety Report 5966323-X (Version None)
Quarter: 2008Q4

REPORT INFORMATION
  Report Type: 
  Country: None (occurrence: None)
  Receive Date: 20081125
  Receipt Date: 20081030
  Transmission Date: 20090506
  Serious: No
  Sender: FDA-Public Use
  Company Number: US-AMGEN-KDL316534

PATIENT
  Sex: Female

DRUGS (2)
  1. ENBREL [Suspect]
     Indication: RHEUMATOID ARTHRITIS
     Route: 058
  2. IMURAN [Concomitant]
     Route: 048

REACTIONS (4)
  - JOINT DESTRUCTION [None]
  - LOCALISED INFECTION [None]
  - OPEN WOUND [None]
  - RHEUMATOID ARTHRITIS [None]
